FAERS Safety Report 11291788 (Version 1)
Quarter: 2015Q3

REPORT INFORMATION
  Report Type: Spontaneous
  Country: IT (occurrence: IT)
  Receive Date: 20150722
  Receipt Date: 20150722
  Transmission Date: 20151125
  Serious: Yes (Other)
  Sender: FDA-Public Use
  Company Number: IT-WATSON-2015-14728

PATIENT
  Age: 46 Year
  Weight: 78 kg

DRUGS (1)
  1. SIMVASTATIN (UNKNOWN) [Suspect]
     Active Substance: SIMVASTATIN
     Indication: HYPERCHOLESTEROLAEMIA
     Dosage: 20 MG, DAILY
     Route: 048
     Dates: start: 20150320, end: 20150601

REACTIONS (1)
  - Myopathy [Recovering/Resolving]

NARRATIVE: CASE EVENT DATE: 20150601
